FAERS Safety Report 17584921 (Version 1)
Quarter: 2020Q1

REPORT INFORMATION
  Report Type: Spontaneous
  Country: US (occurrence: US)
  Receive Date: 20200326
  Receipt Date: 20200326
  Transmission Date: 20200409
  Serious: No
  Sender: FDA-Public Use
  Company Number: US-VERTEX PHARMACEUTICALS-2020-006257

PATIENT
  Sex: Female
  Weight: 43.54 kg

DRUGS (11)
  1. TRIKAFTA [Suspect]
     Active Substance: ELEXACAFTOR\IVACAFTOR\TEZACAFTOR
     Indication: CYSTIC FIBROSIS
     Dosage: 2  TABLETS100 MG ELEXACAFTOR/ 50 MG TEZACAFTOR/ 75 MG IVACAFTOR(AM) AND 1 TABLET 150MG IVACAFTOR(PM)
     Route: 048
     Dates: start: 201911
  2. TOBRAMYCIN. [Concomitant]
     Active Substance: TOBRAMYCIN
  3. FLONASE ALLERGY RELIEF [Concomitant]
     Active Substance: FLUTICASONE PROPIONATE
  4. SODIUM CHLORIDE. [Concomitant]
     Active Substance: SODIUM CHLORIDE
  5. MEPHYTON [Concomitant]
     Active Substance: PHYTONADIONE
  6. PULMOZYME [Concomitant]
     Active Substance: DORNASE ALFA
  7. ZANTAC [Concomitant]
     Active Substance: RANITIDINE HYDROCHLORIDE
  8. NEXIUM I.V. [Concomitant]
     Active Substance: ESOMEPRAZOLE SODIUM
  9. ATENOLOL. [Concomitant]
     Active Substance: ATENOLOL
  10. VITAMIN D3 [Concomitant]
     Active Substance: CHOLECALCIFEROL
  11. CREON [Concomitant]
     Active Substance: PANCRELIPASE AMYLASE\PANCRELIPASE LIPASE\PANCRELIPASE PROTEASE

REACTIONS (1)
  - Infective pulmonary exacerbation of cystic fibrosis [Unknown]
